FAERS Safety Report 8391085-9 (Version None)
Quarter: 2012Q2

REPORT INFORMATION
  Report Type: 
  Country: None (occurrence: None)
  Receive Date: 20120529
  Receipt Date: 20120521
  Transmission Date: 20120825
  Serious: Yes (Hospitalization)
  Sender: FDA-Public Use
  Company Number: US-BAYER-2012-000113

PATIENT
  Age: 44 Year
  Sex: Female
  Weight: 86.168 kg

DRUGS (15)
  1. EFFEXOR [Concomitant]
     Indication: MIGRAINE
     Dosage: UNK
     Dates: start: 20000101
  2. NAPROXEN [Concomitant]
     Dosage: UNK
     Dates: start: 20080101, end: 20100601
  3. AZITHROMYCIN [Concomitant]
     Dosage: 250 MG, UNK
     Route: 048
  4. IOPHEN-C NR [Concomitant]
  5. YASMIN [Suspect]
     Dosage: UNK
     Dates: start: 20080101, end: 20090101
  6. DROSPIRENONE AND ETHINYL ESTRADIOL [Suspect]
     Dosage: UNK
     Dates: start: 20080101, end: 20090101
  7. PROAIR HFA [Concomitant]
     Dosage: 90 MCG PER PUFF
     Route: 055
  8. DECONGESTANTS AND ANTIALLERGICS [Concomitant]
  9. OMEPRAZOLE [Concomitant]
     Indication: GASTROOESOPHAGEAL REFLUX DISEASE
     Dosage: UNK
     Dates: start: 20040101
  10. ANTIBIOTICS [Concomitant]
  11. FLONASE [Concomitant]
     Dosage: 2 SPRAYS
     Route: 048
  12. FLUCONAZOLE [Concomitant]
     Dosage: 150 MG, UNK
  13. SYNTHROID [Concomitant]
     Indication: HYPOTHYROIDISM
     Dosage: 150 ?G, UNK
     Dates: start: 19920801
  14. IBUPROFEN [Concomitant]
     Dosage: UNK
     Dates: start: 20080101, end: 20100601
  15. AMOXICILLIN + CLAVULANATE POTASSIUM [Concomitant]
     Dosage: 875-125 UNK, UNK
     Route: 048

REACTIONS (4)
  - DYSPNOEA [None]
  - PAIN IN EXTREMITY [None]
  - CHEST PAIN [None]
  - PULMONARY EMBOLISM [None]
